FAERS Safety Report 16884911 (Version 1)
Quarter: 2019Q4

REPORT INFORMATION
  Report Type: Spontaneous
  Country: US (occurrence: US)
  Receive Date: 20190808
  Receipt Date: 20190808
  Transmission Date: 20200122
  Serious: No
  Sender: FDA-Public Use
  Company Number: None

PATIENT
  Age: 60 Year
  Sex: Female

DRUGS (1)
  1. HUMIRA [Suspect]
     Active Substance: ADALIMUMAB
     Indication: PSORIATIC ARTHROPATHY
     Route: 058
     Dates: start: 20190710, end: 20190808

REACTIONS (5)
  - Nausea [None]
  - Pain in extremity [None]
  - Swelling face [None]
  - Rash macular [None]
  - Contusion [None]

NARRATIVE: CASE EVENT DATE: 201907
